FAERS Safety Report 7915141-1 (Version None)
Quarter: 2011Q4

REPORT INFORMATION
  Report Type: 
  Country: None (occurrence: None)
  Receive Date: 20111115
  Receipt Date: 20111102
  Transmission Date: 20120403
  Serious: Yes (Hospitalization)
  Sender: FDA-Public Use
  Company Number: US-ACTELION-A-NJ2006-13649

PATIENT

DRUGS (6)
  1. DEMADEX [Concomitant]
  2. DIGOXIN [Concomitant]
  3. TRACLEER [Suspect]
     Indication: PULMONARY ARTERIAL HYPERTENSION
     Route: 048
     Dates: start: 20020418
  4. ADCIRCA [Concomitant]
  5. SPIRONOLACTONE [Concomitant]
  6. COUMADIN [Concomitant]

REACTIONS (19)
  - CHEST PAIN [None]
  - DYSPNOEA [None]
  - DIABETES MELLITUS [None]
  - BACK PAIN [None]
  - OEDEMA [None]
  - PAIN [None]
  - URINE ODOUR ABNORMAL [None]
  - CARDIAC FAILURE CONGESTIVE [None]
  - CONDITION AGGRAVATED [None]
  - FATIGUE [None]
  - CELLULITIS [None]
  - MYOCARDIAL INFARCTION [None]
  - PULMONARY ARTERIAL HYPERTENSION [None]
  - EXTRASYSTOLES [None]
  - CONCOMITANT DISEASE AGGRAVATED [None]
  - FLUID OVERLOAD [None]
  - SLEEP APNOEA SYNDROME [None]
  - CHEST DISCOMFORT [None]
  - PNEUMONIA [None]
